FAERS Safety Report 6676673-X (Version None)
Quarter: 2010Q2

REPORT INFORMATION
  Report Type: 
  Country: None (occurrence: None)
  Receive Date: 20100412
  Receipt Date: 20100330
  Transmission Date: 20101027
  Serious: Yes (Hospitalization, Disabling, Other)
  Sender: FDA-Public Use
  Company Number: US-ELI_LILLY_AND_COMPANY-US201002001235

PATIENT
  Sex: Male
  Weight: 77 kg

DRUGS (23)
  1. GEMCITABINE HCL [Suspect]
     Indication: PANCREATIC CARCINOMA
     Dosage: 1000 MG/M2, UNKNOWN
     Route: 065
     Dates: start: 20090818, end: 20100125
  2. OXYCODONE [Concomitant]
     Indication: PAIN
     Dosage: UNK, UNK
     Route: 048
     Dates: start: 20090804
  3. CLONAZEPAM [Concomitant]
     Indication: ANXIETY
     Dosage: UNK, UNK
     Route: 048
     Dates: start: 20090701
  4. BENAZEPRIL HYDROCHLORIDE [Concomitant]
     Indication: HYPERTENSION
     Dosage: UNK, UNK
     Route: 048
     Dates: start: 20090101
  5. OXYCODONE HCL [Concomitant]
     Indication: PAIN
     Dates: start: 20090826
  6. DOCUSATE SODIUM [Concomitant]
     Indication: CONSTIPATION
     Dates: start: 20090827
  7. MACROGOL [Concomitant]
     Indication: CONSTIPATION
     Route: 048
     Dates: start: 20090827
  8. POTASSIUM CHLORIDE [Concomitant]
     Indication: PROPHYLAXIS
     Route: 048
     Dates: start: 20091110
  9. LORAZEPAM [Concomitant]
     Indication: PROPHYLAXIS
     Route: 048
     Dates: start: 20090818
  10. PROCHLORPERAZINE EDISYLATE [Concomitant]
     Indication: PROPHYLAXIS
     Route: 048
     Dates: start: 20090818
  11. ONDANSETRON HYDROCHLORIDE [Concomitant]
     Indication: NAUSEA
     Route: 042
     Dates: start: 20090818
  12. ONDANSETRON HYDROCHLORIDE [Concomitant]
     Dosage: UNK, UNK
     Route: 048
     Dates: start: 20091207
  13. DEXAMETHASONE [Concomitant]
     Indication: NAUSEA
     Route: 048
     Dates: start: 20091207
  14. ONE A DAY PLUS IRON [Concomitant]
     Indication: VITAMIN SUPPLEMENTATION
     Route: 048
     Dates: start: 20091216
  15. DARBEPOETIN ALFA [Concomitant]
     Indication: ANAEMIA
     Route: 058
     Dates: start: 20091221
  16. SODIUM CHLORIDE [Concomitant]
     Indication: DEHYDRATION
     Route: 042
     Dates: start: 20090104
  17. FUROSEMIDE [Concomitant]
     Indication: FLUID RETENTION
     Route: 042
     Dates: start: 20100104
  18. SPIRONOLACTONE [Concomitant]
     Indication: FLUID RETENTION
     Route: 048
     Dates: start: 20100111
  19. MEGACE [Concomitant]
     Route: 048
     Dates: start: 20100210
  20. MUCOMYST [Concomitant]
     Route: 048
     Dates: start: 20100211, end: 20100213
  21. PROTONIX [Concomitant]
     Indication: GASTROOESOPHAGEAL REFLUX DISEASE
     Dosage: UNK, UNK
     Route: 048
     Dates: start: 20100210
  22. SODIUM CHLORIDE [Concomitant]
     Indication: PROPHYLAXIS
     Route: 042
     Dates: start: 20100211, end: 20100211
  23. LIDOCAINE [Concomitant]
     Indication: PROPHYLAXIS
     Route: 061
     Dates: start: 20100217, end: 20100217

REACTIONS (17)
  - BALANCE DISORDER [None]
  - BLINDNESS [None]
  - CSF CULTURE POSITIVE [None]
  - DISSEMINATED INTRAVASCULAR COAGULATION [None]
  - HYPOPHAGIA [None]
  - INTESTINAL DILATATION [None]
  - LEFT VENTRICULAR HYPERTROPHY [None]
  - MITRAL VALVE INCOMPETENCE [None]
  - MITRAL VALVE PROLAPSE [None]
  - PANCYTOPENIA [None]
  - PAPILLOEDEMA [None]
  - PERICARDIAL EFFUSION [None]
  - PLEURAL EFFUSION [None]
  - RENAL FAILURE ACUTE [None]
  - SCAR [None]
  - STAPHYLOCOCCAL INFECTION [None]
  - TRICUSPID VALVE INCOMPETENCE [None]
